FAERS Safety Report 8602686-4 (Version None)
Quarter: 2012Q3

REPORT INFORMATION
  Report Type: 
  Country: None (occurrence: None)
  Receive Date: 20120817
  Receipt Date: 20120809
  Transmission Date: 20120928
  Serious: Yes (Hospitalization)
  Sender: FDA-Public Use
  Company Number: US-PFIZER INC-2012195536

PATIENT
  Age: 34 Year
  Sex: Male

DRUGS (2)
  1. TRIMETHOPRIM-SULFAMETHOXAZOLE [Suspect]
     Dosage: UNK
     Route: 042
  2. TRIMETHOPRIM-SULFAMETHOXAZOLE [Suspect]
     Dosage: UNK
     Route: 048

REACTIONS (9)
  - TACHYCARDIA [None]
  - LEUKOPENIA [None]
  - ABDOMINAL PAIN [None]
  - RASH [None]
  - PYREXIA [None]
  - HYPOTENSION [None]
  - PRURITUS [None]
  - CONJUNCTIVAL HYPERAEMIA [None]
  - ERYTHEMA [None]
